FAERS Safety Report 9299393 (Version 2)
Quarter: 2013Q2

REPORT INFORMATION
  Report Type: Spontaneous
  Country: FR (occurrence: FR)
  Receive Date: 20130520
  Receipt Date: 20130531
  Transmission Date: 20140414
  Serious: Yes (Hospitalization)
  Sender: FDA-Public Use
  Company Number: FR-B.I. PHARMACEUTICALS,INC./RIDGEFIELD-2013-FF-01365FF

PATIENT
  Age: 69 Year
  Sex: Male

DRUGS (5)
  1. PRADAXA [Suspect]
     Indication: PROPHYLAXIS
     Dosage: 300 MG
     Route: 048
     Dates: start: 201210, end: 20121118
  2. COZAAR [Concomitant]
  3. FLECAINE [Concomitant]
  4. PRAVASTATIN SODIUM [Concomitant]
  5. INEXIUM [Concomitant]

REACTIONS (3)
  - Coagulopathy [Recovered/Resolved]
  - Gingival bleeding [Recovered/Resolved]
  - Encephalopathy [Recovered/Resolved]
